FAERS Safety Report 19361618 (Version 1)
Quarter: 2021Q2

REPORT INFORMATION
  Report Type: Report from Study
  Country: None (occurrence: US)
  Receive Date: 20210602
  Receipt Date: 20210602
  Transmission Date: 20210717
  Serious: No
  Sender: FDA-Public Use
  Company Number: US-MDD US OPERATIONS-USW202005-000959

PATIENT
  Age: 87 Year
  Sex: Male
  Weight: 63.5 kg

DRUGS (8)
  1. APOKYN [Suspect]
     Active Substance: APOMORPHINE HYDROCHLORIDE
  2. APOKYN [Suspect]
     Active Substance: APOMORPHINE HYDROCHLORIDE
  3. TIGAN [Concomitant]
     Active Substance: TRIMETHOBENZAMIDE HYDROCHLORIDE
     Indication: NAUSEA
     Dates: start: 20200421, end: 20200424
  4. APOKYN [Suspect]
     Active Substance: APOMORPHINE HYDROCHLORIDE
     Indication: PARKINSON^S DISEASE
     Dosage: 0.2 AND TITRATING
     Route: 058
     Dates: start: 20200424
  5. RYTARY [Concomitant]
     Active Substance: CARBIDOPA\LEVODOPA
     Indication: PARKINSON^S DISEASE
     Dosage: UNKNOWN
  6. APOKYN [Suspect]
     Active Substance: APOMORPHINE HYDROCHLORIDE
     Dosage: UP TO 0.6ML UP TO FIVE TIMES A DAY
     Route: 058
     Dates: start: 20200424, end: 20200510
  7. NEUPRO [Concomitant]
     Active Substance: ROTIGOTINE
     Indication: PARKINSON^S DISEASE
     Dosage: UNKNOWN
  8. AZILECT [Concomitant]
     Active Substance: RASAGILINE MESYLATE
     Indication: PARKINSON^S DISEASE
     Dosage: UNKNOWN

REACTIONS (5)
  - Flushing [Recovered/Resolved]
  - Dizziness [Recovered/Resolved]
  - Hyperhidrosis [Recovered/Resolved]
  - Feeling hot [Recovered/Resolved]
  - Therapy non-responder [Unknown]

NARRATIVE: CASE EVENT DATE: 20200505
